FAERS Safety Report 12709224 (Version 1)
Quarter: 2016Q3

REPORT INFORMATION
  Report Type: Spontaneous
  Country: BR (occurrence: BR)
  Receive Date: 20160901
  Receipt Date: 20160901
  Transmission Date: 20161109
  Serious: Yes (Other)
  Sender: FDA-Public Use
  Company Number: BR-BAYER-2016-168600

PATIENT
  Age: 33 Year
  Sex: Female

DRUGS (2)
  1. YAZ [Suspect]
     Active Substance: DROSPIRENONE\ETHINYL ESTRADIOL
     Indication: CONTRACEPTION
     Dosage: 1 DF, QD
     Route: 048
     Dates: end: 2016
  2. QLAIRA [Suspect]
     Active Substance: DIENOGEST\ESTRADIOL VALERATE
     Indication: CONTRACEPTION
     Dosage: UNK
     Route: 048
     Dates: start: 20160819, end: 20160824

REACTIONS (9)
  - Migraine [Recovered/Resolved]
  - Somnolence [Recovered/Resolved]
  - Abdominal pain lower [Recovered/Resolved]
  - Breast pain [Recovered/Resolved]
  - Irritability [Recovered/Resolved]
  - Hemiplegia [Recovered/Resolved]
  - Product use issue [None]
  - Paraesthesia [Recovered/Resolved]
  - Migraine [Recovered/Resolved]

NARRATIVE: CASE EVENT DATE: 20160817
